FAERS Safety Report 16536706 (Version 1)
Quarter: 2019Q3

REPORT INFORMATION
  Report Type: Spontaneous
  Country: US (occurrence: US)
  Receive Date: 20190706
  Receipt Date: 20190706
  Transmission Date: 20191004
  Serious: No
  Sender: FDA-Public Use
  Company Number: US-TEVA-2019-US-1069658

PATIENT
  Sex: Female

DRUGS (1)
  1. TRIAMTERENE/HYDROCHLOROTHIAZIDE [Suspect]
     Active Substance: HYDROCHLOROTHIAZIDE\TRIAMTERENE
     Dosage: TRIAMTERENE: 37.5 MG ?HYDROCHLOROTHIAZIDE: 25 MG
     Route: 065

REACTIONS (3)
  - Swelling [Unknown]
  - Drug ineffective [Unknown]
  - Product substitution issue [Unknown]
